FAERS Safety Report 24026371 (Version 1)
Quarter: 2024Q2

REPORT INFORMATION
  Report Type: Report from Study
  Country: RO (occurrence: RO)
  Receive Date: 20240628
  Receipt Date: 20240628
  Transmission Date: 20240716
  Serious: No
  Sender: FDA-Public Use
  Company Number: RO-ROCHE-3562083

PATIENT
  Age: 47 Year
  Sex: Female
  Weight: 60.0 kg

DRUGS (1)
  1. PHESGO [Suspect]
     Active Substance: HYALURONIDASE-ZZXF\PERTUZUMAB\TRASTUZUMAB
     Indication: Breast cancer
     Dosage: 1 VIAL 10 ML?DOSE 600 MG/600 MG
     Route: 058

REACTIONS (1)
  - Nasopharyngitis [Unknown]
